FAERS Safety Report 9312833 (Version 6)
Quarter: 2015Q1

REPORT INFORMATION
  Report Type: Spontaneous
  Country: US (occurrence: US)
  Receive Date: 20130528
  Receipt Date: 20150219
  Transmission Date: 20150721
  Serious: Yes (Hospitalization, Other)
  Sender: FDA-Public Use
  Company Number: US-009507513-1305USA012994

PATIENT
  Sex: Male
  Weight: 82.86 kg

DRUGS (5)
  1. FINASTERIDE. [Suspect]
     Active Substance: FINASTERIDE
     Indication: ALOPECIA
     Dosage: 1 MG, UNK
     Route: 048
     Dates: start: 201010, end: 201112
  2. PROSCAR [Suspect]
     Active Substance: FINASTERIDE
     Indication: ALOPECIA
     Dosage: 5 MG, UNK
     Route: 048
     Dates: start: 20101120, end: 201112
  3. LISINOPRIL. [Concomitant]
     Active Substance: LISINOPRIL
     Indication: BLOOD PRESSURE
     Dosage: UNK
     Route: 048
     Dates: start: 1992
  4. PROPECIA [Suspect]
     Active Substance: FINASTERIDE
     Indication: ALOPECIA
     Dosage: 1 MG, QD
     Route: 048
     Dates: start: 20101002, end: 201107
  5. LOVASTATIN. [Concomitant]
     Active Substance: LOVASTATIN
     Indication: BLOOD CHOLESTEROL
     Dosage: UNK
     Route: 048
     Dates: start: 1992

REACTIONS (30)
  - Skin cancer [Unknown]
  - Insomnia [Unknown]
  - Sexual dysfunction [Not Recovered/Not Resolved]
  - Penile size reduced [Unknown]
  - Penis injury [Unknown]
  - Brain injury [Unknown]
  - Sinus disorder [Unknown]
  - Angioplasty [Unknown]
  - Drug administration error [Recovered/Resolved]
  - Myocardial infarction [Unknown]
  - Hyperglycaemia [Unknown]
  - Hyperlipidaemia [Unknown]
  - Skin ulcer [Unknown]
  - Vision blurred [Unknown]
  - Benign prostatic hyperplasia [Not Recovered/Not Resolved]
  - Nephrolithiasis [Unknown]
  - Coronary artery disease [Unknown]
  - Erectile dysfunction [Not Recovered/Not Resolved]
  - Libido decreased [Unknown]
  - Arthropathy [Unknown]
  - Cataract [Unknown]
  - Eye disorder [Unknown]
  - Oesophageal disorder [Unknown]
  - Eyelid disorder [Unknown]
  - Stent malfunction [Unknown]
  - Androgens abnormal [Unknown]
  - Actinic keratosis [Unknown]
  - Fatigue [Unknown]
  - Panic attack [Unknown]
  - Rib fracture [Unknown]

NARRATIVE: CASE EVENT DATE: 201010
